FAERS Safety Report 6344412-8 (Version None)
Quarter: 2009Q3

REPORT INFORMATION
  Report Type: 
  Country: None (occurrence: None)
  Receive Date: 20090908
  Receipt Date: 20090826
  Transmission Date: 20100115
  Serious: Yes (Hospitalization)
  Sender: FDA-Public Use
  Company Number: PHHY2009MX34468

PATIENT
  Sex: Female

DRUGS (1)
  1. DIOVAN HCT [Suspect]
     Indication: HYPERTENSION
     Dosage: 1 DF (160/12.5 MG) PER DAY
     Dates: start: 20090601

REACTIONS (4)
  - FALL [None]
  - FEMUR FRACTURE [None]
  - GAIT DISTURBANCE [None]
  - PROSTHESIS IMPLANTATION [None]
